FAERS Safety Report 9929222 (Version 1)
Quarter: 2014Q1

REPORT INFORMATION
  Report Type: Spontaneous
  Country: US (occurrence: None)
  Receive Date: 20140225
  Receipt Date: 20140225
  Transmission Date: 20141002
  Serious: Yes (Death)
  Sender: FDA-Public Use
  Company Number: 2014US003031

PATIENT
  Age: 38 Year
  Sex: Male

DRUGS (1)
  1. ICLUSIG (PONATINIB) [Suspect]
     Indication: CHRONIC MYELOID LEUKAEMIA
     Dosage: , ORAL
     Route: 048

REACTIONS (1)
  - Death [None]
